FAERS Safety Report 13906668 (Version 3)
Quarter: 2017Q4

REPORT INFORMATION
  Report Type: Spontaneous
  Country: US (occurrence: US)
  Receive Date: 20170825
  Receipt Date: 20171013
  Transmission Date: 20180320
  Serious: Yes (Death, Hospitalization)
  Sender: FDA-Public Use
  Company Number: US-ACTELION-A-NJ2017-158469

PATIENT
  Age: 62 Year
  Sex: Female

DRUGS (9)
  1. HALOPERIDOL. [Concomitant]
     Active Substance: HALOPERIDOL
  2. UPTRAVI [Suspect]
     Active Substance: SELEXIPAG
     Dosage: 600 MCG, BID
     Route: 048
  3. OLANZAPINE. [Concomitant]
     Active Substance: OLANZAPINE
  4. WARFARIN [Concomitant]
     Active Substance: WARFARIN
  5. FUROSEMIDE. [Concomitant]
     Active Substance: FUROSEMIDE
  6. MIDODRINE [Concomitant]
     Active Substance: MIDODRINE
  7. UPTRAVI [Suspect]
     Active Substance: SELEXIPAG
     Indication: PULMONARY ARTERIAL HYPERTENSION
     Dosage: 200 MCG, BID
     Route: 048
  8. UPTRAVI [Suspect]
     Active Substance: SELEXIPAG
     Dosage: 400 MCG, BID
     Route: 048
  9. DILTIAZEM. [Concomitant]
     Active Substance: DILTIAZEM

REACTIONS (4)
  - Dyspnoea [Unknown]
  - Vomiting [Unknown]
  - Metastatic neoplasm [Fatal]
  - Feeling jittery [Unknown]
